FAERS Safety Report 7502618-6 (Version None)
Quarter: 2011Q2

REPORT INFORMATION
  Report Type: 
  Country: None (occurrence: None)
  Receive Date: 20110524
  Receipt Date: 20110524
  Transmission Date: 20111010
  Serious: No
  Sender: FDA-Public Use
  Company Number: None

PATIENT
  Age: 33 Year
  Sex: Female
  Weight: 85.7298 kg

DRUGS (2)
  1. HUMIRA [Concomitant]
  2. STELARA [Suspect]
     Indication: PSORIASIS
     Dosage: 45MG 45MG EVERY 12WEEKS SQ
     Route: 058
     Dates: start: 20101001

REACTIONS (1)
  - DRUG EFFECT DECREASED [None]
